FAERS Safety Report 25669122 (Version 1)
Quarter: 2025Q3

REPORT INFORMATION
  Report Type: Spontaneous
  Country: GB (occurrence: GB)
  Receive Date: 20250812
  Receipt Date: 20250812
  Transmission Date: 20251020
  Serious: Yes (Hospitalization, Disabling, Other)
  Sender: RANBAXY
  Company Number: GB-MHRA-MED-202507280954377950-PVKRT

PATIENT
  Age: 30 Year
  Sex: Female
  Weight: 97 kg

DRUGS (1)
  1. CIPROFLOXACIN [Suspect]
     Active Substance: CIPROFLOXACIN
     Indication: Urinary tract infection
     Route: 065
     Dates: start: 20230618

REACTIONS (17)
  - Neuropathy peripheral [Recovered/Resolved with Sequelae]
  - Anxiety [Not Recovered/Not Resolved]
  - Depression [Recovering/Resolving]
  - Tendon injury [Recovering/Resolving]
  - Chest pain [Not Recovered/Not Resolved]
  - Swelling [Recovering/Resolving]
  - Fatigue [Recovered/Resolved with Sequelae]
  - Localised infection [Recovered/Resolved]
  - Muscular weakness [Recovering/Resolving]
  - Obsessive thoughts [Recovering/Resolving]
  - Dizziness [Recovering/Resolving]
  - Brain fog [Recovering/Resolving]
  - Pain [Recovering/Resolving]
  - Neuralgia [Recovering/Resolving]
  - Paraesthesia [Recovered/Resolved]
  - Nocturia [Recovering/Resolving]
  - Cystitis interstitial [Recovering/Resolving]
